FAERS Safety Report 18690113 (Version 10)
Quarter: 2021Q3

REPORT INFORMATION
  Report Type: Report from Study
  Country: UA (occurrence: UA)
  Receive Date: 20201231
  Receipt Date: 20210729
  Transmission Date: 20211014
  Serious: Yes (Death, Life-Threatening, Hospitalization, Other)
  Sender: FDA-Public Use
  Company Number: UA-CELGENEUS-UKR-20201206807

PATIENT
  Age: 41 Year
  Sex: Female
  Weight: 55 kg

DRUGS (16)
  1. VITAMIN D [Concomitant]
     Active Substance: VITAMIN D NOS
     Indication: COVID-19 PNEUMONIA
     Dosage: 1 TABLET
     Route: 065
     Dates: start: 20201116, end: 20201117
  2. NOVIRIN [Concomitant]
     Indication: PRODUCT USED FOR UNKNOWN INDICATION
     Dosage: 1 TABLET
     Route: 065
  3. VITAMIN D [Concomitant]
     Active Substance: VITAMIN D NOS
     Indication: COVID-19
     Dosage: 1 TABLET
     Route: 065
     Dates: start: 20201118, end: 20201126
  4. VITAMIN C [Concomitant]
     Active Substance: ASCORBIC ACID
     Indication: PRODUCT USED FOR UNKNOWN INDICATION
     Dosage: 500 MILLIGRAM
     Route: 048
     Dates: start: 20201116, end: 20201117
  5. HYOSCINE BUTYLBROMIDE [Concomitant]
     Active Substance: BUTYLSCOPOLAMINE BROMIDE
     Indication: GASTRITIS PROPHYLAXIS
     Dosage: 20 MILLIGRAM
     Route: 048
     Dates: start: 20201109, end: 20201113
  6. VITAMIN C [Concomitant]
     Active Substance: ASCORBIC ACID
     Indication: COVID-19
     Route: 065
     Dates: start: 20201118
  7. OZANIMOD. [Suspect]
     Active Substance: OZANIMOD
     Indication: RELAPSING MULTIPLE SCLEROSIS
     Dosage: 1 MILLIGRAM
     Route: 048
     Dates: start: 20161110, end: 20201204
  8. TRI?REGOL [Concomitant]
     Indication: CONTRACEPTION
     Dosage: 1 TABLET
     Route: 048
     Dates: start: 20150908, end: 20201203
  9. PANTOPRAZOLE [Concomitant]
     Active Substance: PANTOPRAZOLE
     Indication: GASTRITIS PROPHYLAXIS
     Dosage: 40 MILLIGRAM
     Route: 048
     Dates: start: 20201109, end: 20201113
  10. FUROSEMIDUIN [Concomitant]
     Indication: MULTIPLE SCLEROSIS RELAPSE
     Route: 041
     Dates: start: 20201106
  11. METHYLPREDNISOLONE. [Concomitant]
     Active Substance: METHYLPREDNISOLONE
     Dosage: 1000 MILLIGRAM
     Route: 041
     Dates: start: 20201109, end: 20201113
  12. BACLOFEN. [Concomitant]
     Active Substance: BACLOFEN
     Indication: MULTIPLE SCLEROSIS
     Dosage: 10 MILLIGRAM
     Route: 048
     Dates: start: 20170512, end: 20201203
  13. FUROSEMIDUIN [Concomitant]
     Route: 041
     Dates: start: 20201110, end: 20201112
  14. METHYLPREDNISOLONE. [Concomitant]
     Active Substance: METHYLPREDNISOLONE
     Indication: MULTIPLE SCLEROSIS RELAPSE
     Dosage: 1000 MILLIGRAM
     Route: 041
     Dates: start: 20201105
  15. OMEPRAZOLE. [Concomitant]
     Active Substance: OMEPRAZOLE
     Indication: GASTRITIS PROPHYLAXIS
     Dosage: 80 MILLIGRAM
     Route: 048
     Dates: start: 20201109, end: 20201113
  16. INOSINE [Concomitant]
     Active Substance: INOSINE
     Indication: COVID-19
     Dosage: 500 MILLIGRAM
     Route: 048
     Dates: start: 20201116, end: 20201118

REACTIONS (3)
  - Pulmonary embolism [Fatal]
  - COVID-19 [Recovered/Resolved]
  - COVID-19 pneumonia [Not Recovered/Not Resolved]

NARRATIVE: CASE EVENT DATE: 20201114
